FAERS Safety Report 7137226-2 (Version None)
Quarter: 2010Q4

REPORT INFORMATION
  Report Type: 
  Country: None (occurrence: None)
  Receive Date: 20101206
  Receipt Date: 20101124
  Transmission Date: 20110411
  Serious: Yes (Other)
  Sender: FDA-Public Use
  Company Number: US-JNJFOC-20100400963

PATIENT
  Age: 75 Year
  Sex: Male
  Weight: 79.83 kg

DRUGS (6)
  1. TYLENOL COLD MULTI-SYMPTOM DAYTIME COOL BURST [Suspect]
     Indication: NASOPHARYNGITIS
  2. TYLENOL COLD MULTI-SYMPTOM NIGHTTIME COOL BURST [Suspect]
     Indication: NASOPHARYNGITIS
  3. HUMALOG [Concomitant]
     Indication: DIABETES MELLITUS
  4. ACTOS [Concomitant]
     Indication: DIABETES MELLITUS
  5. NIASPAN [Concomitant]
  6. LEVEMIR [Concomitant]

REACTIONS (27)
  - ACTINIC KERATOSIS [None]
  - ACTIVITIES OF DAILY LIVING IMPAIRED [None]
  - AORTIC STENOSIS [None]
  - CHEST PAIN [None]
  - DERMATITIS CONTACT [None]
  - DILATATION ATRIAL [None]
  - DIZZINESS [None]
  - DRUG HYPERSENSITIVITY [None]
  - DYSPNOEA [None]
  - ERYTHEMA [None]
  - EYELID OEDEMA [None]
  - FATIGUE [None]
  - IMPAIRED WORK ABILITY [None]
  - LEFT VENTRICULAR HYPERTROPHY [None]
  - MITRAL VALVE DISEASE [None]
  - MITRAL VALVE INCOMPETENCE [None]
  - NAUSEA [None]
  - PHOTOSENSITIVITY REACTION [None]
  - QRS AXIS ABNORMAL [None]
  - RASH GENERALISED [None]
  - RASH MACULAR [None]
  - RASH PRURITIC [None]
  - SJOGREN'S SYNDROME [None]
  - SKIN EXFOLIATION [None]
  - SKIN IRRITATION [None]
  - TRICUSPID VALVE INCOMPETENCE [None]
  - VENTRICULAR EXTRASYSTOLES [None]
